FAERS Safety Report 5018631-7 (Version None)
Quarter: 2006Q2

REPORT INFORMATION
  Report Type: 
  Country: None (occurrence: None)
  Receive Date: 20060414
  Receipt Date: 20051229
  Transmission Date: 20061013
  Serious: No
  Sender: FDA-Public Use
  Company Number: 2005SP004567

PATIENT
  Age: 52 Year
  Sex: Female
  Weight: 138.8007 kg

DRUGS (6)
  1. LUNESTA [Suspect]
     Indication: INSOMNIA
     Dosage: 5 MG;HS;ORAL
     Route: 048
     Dates: start: 20051001, end: 20051201
  2. AMIODARONE HCL [Concomitant]
  3. PREVACID [Concomitant]
  4. LOTREL [Concomitant]
  5. ISOSORBIDE [Concomitant]
  6. ALLOPURINOL [Concomitant]

REACTIONS (2)
  - RASH [None]
  - URTICARIA [None]
